FAERS Safety Report 8636849 (Version 3)
Quarter: 2013Q4

REPORT INFORMATION
  Report Type: Spontaneous
  Country: US (occurrence: US)
  Receive Date: 20120626
  Receipt Date: 20131008
  Transmission Date: 20140711
  Serious: Yes (Other)
  Sender: FDA-Public Use
  Company Number: CHPA2012US012669

PATIENT
  Age: 74 Year
  Sex: Female

DRUGS (3)
  1. EXCEDRIN EXTRA STRENGTH [Suspect]
     Indication: ANTICOAGULANT THERAPY
     Dosage: 1 DF, BID
     Route: 048
  2. EXCEDRIN EXTRA STRENGTH [Suspect]
     Indication: HEADACHE
     Dosage: 1 DF, QD
     Route: 048
     Dates: start: 2002, end: 201205
  3. ASPIRIN BUFFERED [Concomitant]
     Indication: ANTICOAGULANT THERAPY
     Dosage: 81 MG, UNK

REACTIONS (5)
  - Hypertension [Recovering/Resolving]
  - Headache [Not Recovered/Not Resolved]
  - Off label use [Unknown]
  - Incorrect drug administration duration [Unknown]
  - Underdose [Unknown]
